FAERS Safety Report 5050221-2 (Version None)
Quarter: 2006Q3

REPORT INFORMATION
  Report Type: 
  Country: None (occurrence: None)
  Receive Date: 20060713
  Receipt Date: 20060615
  Transmission Date: 20061208
  Serious: Yes (Hospitalization)
  Sender: FDA-Public Use
  Company Number: PHHO2006VE09870

PATIENT
  Age: 39 Year
  Sex: Female
  Weight: 42 kg

DRUGS (3)
  1. NEORAL [Suspect]
     Indication: TRANSPLANT
     Dosage: 150 MG, QD
     Route: 048
     Dates: start: 19980221
  2. METICORTEN [Concomitant]
     Dates: start: 19980221
  3. IMURAN [Concomitant]
     Dosage: 50 MG, QD
     Route: 048
     Dates: start: 19980221

REACTIONS (2)
  - ABDOMINAL PAIN [None]
  - INTESTINAL OBSTRUCTION [None]
